FAERS Safety Report 19270723 (Version 1)
Quarter: 2021Q2

REPORT INFORMATION
  Report Type: Spontaneous
  Country: US (occurrence: US)
  Receive Date: 20210518
  Receipt Date: 20210518
  Transmission Date: 20210717
  Serious: Yes (Other)
  Sender: FDA-Public Use
  Company Number: US-FRESENIUS KABI-FK202105031

PATIENT
  Age: 26 Year
  Sex: Female

DRUGS (1)
  1. HEPARIN (MANUFACTURER UNKNOWN) [Suspect]
     Active Substance: HEPARIN SODIUM
     Indication: PROSTHETIC CARDIAC VALVE THROMBOSIS
     Route: 050

REACTIONS (2)
  - Exposure during pregnancy [Unknown]
  - Embolic stroke [Unknown]
